FAERS Safety Report 12221473 (Version 2)
Quarter: 2016Q2

REPORT INFORMATION
  Report Type: Spontaneous
  Country: US (occurrence: US)
  Receive Date: 20160330
  Receipt Date: 20160420
  Transmission Date: 20160815
  Serious: No
  Sender: FDA-Public Use
  Company Number: US-DRREDDYS-USA/USA/16/0077909

PATIENT
  Sex: Female

DRUGS (1)
  1. ZENATANE [Suspect]
     Active Substance: ISOTRETINOIN
     Indication: ACNE
     Dosage: 20 MG AND 40 MG ONE CAPSULE DAILY BY MOUTH
     Route: 048
     Dates: start: 20160127, end: 20160229

REACTIONS (1)
  - Back pain [Recovering/Resolving]
